FAERS Safety Report 8500056-0 (Version None)
Quarter: 2012Q3

REPORT INFORMATION
  Report Type: 
  Country: None (occurrence: None)
  Receive Date: 20120710
  Receipt Date: 20120706
  Transmission Date: 20120928
  Serious: Yes (Hospitalization)
  Sender: FDA-Public Use
  Company Number: US-BAYER-2012-068127

PATIENT
  Age: 40 Year
  Sex: Female
  Weight: 65.76 kg

DRUGS (12)
  1. OXYCODONE HCL AND ACETAMINOPHEN [Concomitant]
  2. YASMIN [Suspect]
  3. PREDNISONE TAB [Concomitant]
  4. DROSPIRENONE AND ETHINYL ESTRADIOL [Suspect]
  5. ADVAIR DISKUS 100/50 [Concomitant]
     Dosage: 250/500 MILLIGRAMS TWICE A DAY
  6. YAZ [Suspect]
  7. ALBUTEROL [Concomitant]
  8. CIPROFLOXACIN HCL [Concomitant]
  9. IBUPROFEN [Concomitant]
     Dosage: 800 MG, UNK
  10. ATROVENT [Concomitant]
  11. PERCOCET [Concomitant]
     Dosage: UNK
  12. METRONIDAZOLE [Concomitant]
     Dosage: 0.7 UNK, UNK
     Route: 067

REACTIONS (1)
  - PULMONARY EMBOLISM [None]
